FAERS Safety Report 12648843 (Version 2)
Quarter: 2016Q3

REPORT INFORMATION
  Report Type: Spontaneous
  Country: US (occurrence: US)
  Receive Date: 20160812
  Receipt Date: 20160816
  Transmission Date: 20161109
  Serious: No
  Sender: FDA-Public Use
  Company Number: US-PFIZER INC-2016382955

PATIENT
  Age: 84 Year
  Sex: Male
  Weight: 68 kg

DRUGS (4)
  1. TDAP IPV [Suspect]
     Active Substance: DIPHTHERIA AND TETANUS TOXOIDS AND ACELLULAR PERTUSSIS ADSORBED AND INACTIVATED POLIOVIRUS VACCINE
     Indication: IMMUNISATION
     Dosage: UNK
     Dates: start: 20160808
  2. DILTIAZEM. [Concomitant]
     Active Substance: DILTIAZEM
     Indication: HYPERTENSION
     Dosage: 180 MG, 2X/DAY, (IN MORNING AND IN EVENING)
  3. ADVIL [Suspect]
     Active Substance: IBUPROFEN
     Indication: BACK DISORDER
     Dosage: 600 MG, 3X/DAY
     Route: 048
  4. ADVIL [Suspect]
     Active Substance: IBUPROFEN
     Indication: ARTHRITIS
     Dosage: 600 MG, 1X/DAY
     Dates: start: 20160809

REACTIONS (2)
  - Overdose [Not Recovered/Not Resolved]
  - Purpura [Not Recovered/Not Resolved]

NARRATIVE: CASE EVENT DATE: 20160809
